FAERS Safety Report 9017204 (Version 3)
Quarter: 2014Q3

REPORT INFORMATION
  Report Type: Spontaneous
  Country: US (occurrence: US)
  Receive Date: 20130117
  Receipt Date: 20140915
  Transmission Date: 20150326
  Serious: Yes (Death, Other)
  Sender: FDA-Public Use
  Company Number: US-009507513-1301USA005182

PATIENT
  Sex: Female
  Weight: 74.83 kg

DRUGS (2)
  1. NUVARING [Suspect]
     Active Substance: ETHINYL ESTRADIOL\ETONOGESTREL
     Indication: CONTRACEPTION
     Dosage: UNK
     Route: 067
     Dates: start: 200712, end: 201101
  2. NUVARING [Suspect]
     Active Substance: ETHINYL ESTRADIOL\ETONOGESTREL
     Indication: HORMONE THERAPY
     Dosage: UNK
     Route: 067
     Dates: start: 2011, end: 201108

REACTIONS (8)
  - Acute myocardial infarction [Unknown]
  - Pulmonary embolism [Fatal]
  - Coagulopathy [Unknown]
  - Off label use [Unknown]
  - Inappropriate schedule of drug administration [Unknown]
  - Vulvovaginal mycotic infection [Unknown]
  - Catheterisation cardiac [Unknown]
  - Cardiac arrest [Fatal]

NARRATIVE: CASE EVENT DATE: 200712
